FAERS Safety Report 17641754 (Version 3)
Quarter: 2020Q3

REPORT INFORMATION
  Report Type: Spontaneous
  Country: JP (occurrence: JP)
  Receive Date: 20200407
  Receipt Date: 20200901
  Transmission Date: 20201102
  Serious: Yes (Death, Hospitalization, Other)
  Sender: FDA-Public Use
  Company Number: JP-INCYTE CORPORATION-2020IN003264

PATIENT

DRUGS (14)
  1. BAYASPIRIN [Concomitant]
     Active Substance: ASPIRIN
     Indication: PRODUCT USED FOR UNKNOWN INDICATION
     Dosage: 100 MG,BEFORE ADMINISTRATION OF JAKAVI
     Route: 048
  2. HYDREA [Concomitant]
     Active Substance: HYDROXYUREA
     Dosage: 500 MG, QD
     Route: 048
     Dates: start: 20200110
  3. JAKAVI [Suspect]
     Active Substance: RUXOLITINIB
     Indication: MYELOFIBROSIS
     Dosage: 10 MG
     Route: 048
     Dates: start: 20180525
  4. JAKAVI [Suspect]
     Active Substance: RUXOLITINIB
     Dosage: 40 MG
     Route: 048
     Dates: start: 20190412
  5. JAKAVI [Suspect]
     Active Substance: RUXOLITINIB
     Dosage: 45 MG
     Route: 048
     Dates: start: 20190605
  6. HYDREA [Concomitant]
     Active Substance: HYDROXYUREA
     Indication: MYELOFIBROSIS
     Dosage: 500 MG, QOD
     Route: 048
     Dates: start: 20190815
  7. JAKAVI [Suspect]
     Active Substance: RUXOLITINIB
     Dosage: 20 MG
     Route: 048
     Dates: start: 20180622
  8. JAKAVI [Suspect]
     Active Substance: RUXOLITINIB
     Dosage: 30 MG
     Route: 048
     Dates: start: 20180831
  9. JADENU [Concomitant]
     Active Substance: DEFERASIROX
     Indication: PRODUCT USED FOR UNKNOWN INDICATION
     Dosage: 365 MG
     Route: 048
     Dates: start: 20200124
  10. JAKAVI [Suspect]
     Active Substance: RUXOLITINIB
     Dosage: 35 MG
     Route: 048
     Dates: start: 20180927
  11. JAKAVI [Suspect]
     Active Substance: RUXOLITINIB
     Dosage: 50 MG
     Route: 048
     Dates: start: 20190703, end: 20200329
  12. FEBURIC [Concomitant]
     Active Substance: FEBUXOSTAT
     Indication: PRODUCT USED FOR UNKNOWN INDICATION
     Dosage: 10 MG, BEFORE ADMINISTRATION OF JAKAVI
     Route: 048
  13. JAKAVI [Suspect]
     Active Substance: RUXOLITINIB
     Dosage: 25 MG
     Route: 048
     Dates: start: 20180803
  14. BERAPROST SODIUM [Concomitant]
     Active Substance: BERAPROST SODIUM
     Indication: PRODUCT USED FOR UNKNOWN INDICATION
     Dosage: 5 UG, TID
     Route: 048
     Dates: start: 20180515

REACTIONS (8)
  - Aspartate aminotransferase increased [Unknown]
  - Disseminated intravascular coagulation [Fatal]
  - Staphylococcal infection [Fatal]
  - Malaise [Unknown]
  - Bursitis [Unknown]
  - Sepsis [Fatal]
  - Myelofibrosis [Fatal]
  - Alanine aminotransferase increased [Unknown]

NARRATIVE: CASE EVENT DATE: 2019
